FAERS Safety Report 6710667-0 (Version None)
Quarter: 2010Q2

REPORT INFORMATION
  Report Type: 
  Country: None (occurrence: None)
  Receive Date: 20100504
  Receipt Date: 20100504
  Transmission Date: 20101027
  Serious: Yes (Life-Threatening, Hospitalization)
  Sender: FDA-Public Use
  Company Number: None

PATIENT
  Age: 43 Year
  Sex: Female
  Weight: 72.5755 kg

DRUGS (3)
  1. OCELLA [Suspect]
     Indication: ACNE
     Dosage: 28 DAY
  2. OCELLA [Suspect]
     Indication: CONTRACEPTION
     Dosage: 28 DAY
  3. OCELLA [Suspect]
     Indication: NIGHT SWEATS
     Dosage: 28 DAY

REACTIONS (2)
  - PRODUCT SUBSTITUTION ISSUE [None]
  - PULMONARY EMBOLISM [None]
